FAERS Safety Report 10079552 (Version 1)
Quarter: 2014Q2

REPORT INFORMATION
  Report Type: Spontaneous
  Country: US (occurrence: None)
  Receive Date: 20140414
  Receipt Date: 20140414
  Transmission Date: 20141212
  Serious: Yes (Life-Threatening, Hospitalization)
  Sender: FDA-Public Use
  Company Number: None

PATIENT
  Age: 64 Year
  Sex: Female
  Weight: 58.97 kg

DRUGS (1)
  1. LAMOTRIGINE [Suspect]
     Indication: BIPOLAR DISORDER
     Route: 048
     Dates: start: 20110408, end: 20110417

REACTIONS (7)
  - Hyperpyrexia [None]
  - Rash [None]
  - Stomatitis [None]
  - Dehydration [None]
  - Renal impairment [None]
  - Skin exfoliation [None]
  - Cheilitis [None]
